FAERS Safety Report 12449507 (Version 1)
Quarter: 2016Q2

REPORT INFORMATION
  Report Type: Report from Study
  Country: US (occurrence: US)
  Receive Date: 20160608
  Receipt Date: 20160608
  Transmission Date: 20160815
  Serious: No
  Sender: FDA-Public Use
  Company Number: GXBR2016US001986

PATIENT
  Sex: Male

DRUGS (1)
  1. OMNITROPE [Suspect]
     Active Substance: SOMATROPIN
     Indication: GROWTH HORMONE DEFICIENCY
     Dosage: UNK DF, UNK
     Route: 065

REACTIONS (4)
  - Eye allergy [Recovered/Resolved]
  - Excessive eye blinking [Recovered/Resolved]
  - Muscle twitching [Recovered/Resolved]
  - Irregular breathing [Recovered/Resolved]
